FAERS Safety Report 6000414-2 (Version None)
Quarter: 2008Q4

REPORT INFORMATION
  Report Type: 
  Country: None (occurrence: None)
  Receive Date: 20081211
  Receipt Date: 20081211
  Transmission Date: 20090506
  Serious: Yes (Hospitalization)
  Sender: FDA-Public Use
  Company Number: None

PATIENT
  Age: 80 Year
  Sex: Male
  Weight: 108.8 kg

DRUGS (1)
  1. ZOSYN [Suspect]
     Indication: SEPSIS
     Dosage: 3.375 GM EVERY 12 HOURS
     Dates: start: 20081106, end: 20081111

REACTIONS (1)
  - RESPIRATORY DISTRESS [None]
